FAERS Safety Report 6744420-9 (Version None)
Quarter: 2010Q2

REPORT INFORMATION
  Report Type: 
  Country: None (occurrence: None)
  Receive Date: 20100527
  Receipt Date: 20100519
  Transmission Date: 20101027
  Serious: Yes (Hospitalization, Other)
  Sender: FDA-Public Use
  Company Number: JP-PFIZER INC-2010053664

PATIENT
  Age: 79 Year
  Sex: Male
  Weight: 71.5 kg

DRUGS (18)
  1. CHAMPIX [Suspect]
     Dosage: 0.5 MG, 1X/DAY
     Dates: start: 20100409, end: 20100411
  2. CHAMPIX [Suspect]
     Dosage: 0.5 MG, 2X/DAY
     Dates: start: 20100412, end: 20100415
  3. CHAMPIX [Suspect]
     Dosage: 1 MG, 2X/DAY
     Route: 048
     Dates: start: 20100416, end: 20100430
  4. TAKEPRON [Concomitant]
     Indication: REFLUX OESOPHAGITIS
     Dosage: UNK
     Route: 048
  5. AMLODIN [Concomitant]
     Dosage: UNK
     Route: 048
  6. CANDESARTAN CILEXETIL [Concomitant]
     Dosage: UNK
     Route: 048
  7. LASIX [Concomitant]
     Indication: OEDEMA
     Dosage: UNK
     Route: 048
  8. ALLOPURINOL [Concomitant]
     Dosage: UNK
     Route: 048
  9. URSO 250 [Concomitant]
     Indication: LIVER DISORDER
     Dosage: UNK
     Route: 048
  10. MUCOSTA [Concomitant]
     Indication: GASTRITIS
     Dosage: UNK
     Route: 048
  11. MAGNESIUM OXIDE [Concomitant]
     Indication: CONSTIPATION
     Dosage: UNK
     Route: 048
  12. MYSLEE [Concomitant]
     Indication: INSOMNIA
     Dosage: UNK
     Route: 048
  13. LENDORMIN [Concomitant]
     Dosage: UNK
     Route: 048
  14. BENZALIN [Concomitant]
     Dosage: UNK
     Route: 048
  15. ASPIRIN [Concomitant]
     Indication: CEREBRAL INFARCTION
     Dosage: UNK
     Route: 048
     Dates: start: 20090417
  16. BROCIN-CODEINE [Concomitant]
     Indication: BRONCHITIS CHRONIC
     Dosage: UNK
     Route: 048
     Dates: start: 20091211, end: 20100401
  17. LOXONIN [Concomitant]
     Indication: HEADACHE
     Dosage: UNK
     Route: 048
     Dates: start: 20080710
  18. LOXONIN [Concomitant]
     Indication: PAIN IN EXTREMITY

REACTIONS (2)
  - ILEUS [None]
  - MALAISE [None]
